FAERS Safety Report 16885133 (Version 6)
Quarter: 2019Q4

REPORT INFORMATION
  Report Type: Spontaneous
  Country: US (occurrence: US)
  Receive Date: 20191004
  Receipt Date: 20191220
  Transmission Date: 20200122
  Serious: Yes (Other)
  Sender: FDA-Public Use
  Company Number: US-PFIZER INC-2019427956

PATIENT
  Age: 75 Year
  Sex: Female
  Weight: 86 kg

DRUGS (16)
  1. LISINOPRIL. [Concomitant]
     Active Substance: LISINOPRIL
     Dosage: 5 MG, 1X/DAY
     Route: 048
     Dates: start: 20190704
  2. COENZYME Q10 [Concomitant]
     Active Substance: UBIDECARENONE
     Dosage: 50 MG, 1X/DAY
     Route: 048
  3. FLAX OIL [LINUM USITATISSIMUM OIL] [Concomitant]
     Dosage: UNK, 1X/DAY (TAKE BY MOUTH ONCE DAILY/MORNING)
     Route: 048
  4. CALCIUM CARBONATE. [Concomitant]
     Active Substance: CALCIUM CARBONATE
     Dosage: 600 MG, 2X/DAY (TAKE 600 MG BY MOUTH 2 (TWO) TIMES A DAY WITH MEALS)
     Route: 048
  5. FLUTICASONE PROPIONATE. [Concomitant]
     Active Substance: FLUTICASONE PROPIONATE
     Indication: RHINITIS
     Dosage: UNK (1 SPRAY BY EACH NOSTRIL ROUTE DAILY AS NEEDED FOR RHINITIS)
  6. GINKGO BILOBA [Concomitant]
     Active Substance: GINKGO
     Dosage: UNK, 1X/DAY (TAKE BY MOUTH ONCE DAILY/MORNING)
     Route: 048
  7. ATORVASTATIN [Concomitant]
     Active Substance: ATORVASTATIN
     Dosage: 80 MG, AS NEEDED
     Route: 048
     Dates: start: 20191029
  8. METOPROLOL. [Concomitant]
     Active Substance: METOPROLOL
     Indication: LABILE BLOOD PRESSURE
     Dosage: UNK
     Dates: start: 2008
  9. APIXABAN [Concomitant]
     Active Substance: APIXABAN
     Dosage: 5 MG, 2X/DAY
     Route: 048
  10. CLOPIDOGREL [Concomitant]
     Active Substance: CLOPIDOGREL BISULFATE
     Indication: PAIN
     Dosage: 75 MG, AS NEEDED (TAKE 1 TABLET (75 MG TOTAL) BY MOUTH ONCE DAILY)
     Route: 048
     Dates: start: 20190705
  11. LISINOPRIL. [Concomitant]
     Active Substance: LISINOPRIL
     Indication: BLOOD PRESSURE ABNORMAL
     Dosage: 5 MG, DAILY
     Route: 048
     Dates: start: 20190704, end: 20190911
  12. ATORVASTATIN [Concomitant]
     Active Substance: ATORVASTATIN
     Dosage: 40 MG, 3X/DAY (10-18 TRIED 40MG 3 DAY LATER PAIN IN LEGS WAS BACK)
  13. ATORVASTATIN [Concomitant]
     Active Substance: ATORVASTATIN
     Dosage: 80 MG, 1X/DAY(EVERY NIGHT)
     Route: 048
     Dates: end: 20190918
  14. NITROGLYCERIN. [Concomitant]
     Active Substance: NITROGLYCERIN
     Indication: CHEST PAIN
     Dosage: 0.4 MG, AS NEEDED (PLACE 1 TABLET (0.4 MG TOTAL) UNDER THE TONGUE EVERY 5 (FIVE) MINUTES AS NEEDED)
     Route: 060
  15. ATORVASTATIN CALCIUM. [Suspect]
     Active Substance: ATORVASTATIN CALCIUM
     Indication: CARDIAC DISORDER
     Dosage: 80 MG, 1X/DAY
     Route: 048
     Dates: start: 20190704, end: 201909
  16. METOPROLOL TARTRATE. [Concomitant]
     Active Substance: METOPROLOL TARTRATE
     Dosage: 25 MG, 2X/DAY

REACTIONS (7)
  - Back pain [Unknown]
  - Sepsis [Recovered/Resolved]
  - Chest pain [Recovered/Resolved]
  - Arthralgia [Not Recovered/Not Resolved]
  - Condition aggravated [Not Recovered/Not Resolved]
  - Pain in extremity [Unknown]
  - Neck pain [Not Recovered/Not Resolved]

NARRATIVE: CASE EVENT DATE: 2019
